FAERS Safety Report 23177938 (Version 1)
Quarter: 2023Q4

REPORT INFORMATION
  Report Type: Spontaneous
  Country: US (occurrence: None)
  Receive Date: 20231113
  Receipt Date: 20231113
  Transmission Date: 20240110
  Serious: Yes (unspecified)
  Sender: FDA-Public Use
  Company Number: None

PATIENT
  Age: 67 Year
  Sex: Female
  Weight: 84.15 kg

DRUGS (14)
  1. IMBRUVICA [Suspect]
     Active Substance: IBRUTINIB
     Indication: Chronic lymphocytic leukaemia
     Dosage: OTHER QUANTITY : 2 CAPSULE(S);?FREQUENCY : DAILY;?
     Route: 048
     Dates: start: 20190707, end: 20230807
  2. ATORVASTATIN CALCIUM [Concomitant]
     Active Substance: ATORVASTATIN CALCIUM
  3. AMLODIPINE [Concomitant]
     Active Substance: AMLODIPINE BESYLATE
  4. PEPCID [Concomitant]
     Active Substance: FAMOTIDINE
  5. now Venclexta for CLL [Concomitant]
  6. ASPIRIN [Concomitant]
     Active Substance: ASPIRIN
  7. CALTRATE [Concomitant]
     Active Substance: CALCIUM CARBONATE
  8. VITAMINS [Concomitant]
     Active Substance: VITAMINS
  9. GINGER [Concomitant]
     Active Substance: GINGER
  10. Azo urinary [Concomitant]
  11. OCUVITE [Concomitant]
     Active Substance: VITAMINS
  12. VITAMIN D NOS [Concomitant]
     Active Substance: VITAMIN D NOS
  13. CHROMIUM [Concomitant]
     Active Substance: CHROMIC CHLORIDE\CHROMIUM
  14. MAGNESIUM [Concomitant]
     Active Substance: MAGNESIUM

REACTIONS (5)
  - Cardiac hypertrophy [None]
  - Swelling [None]
  - Fatigue [None]
  - Product label issue [None]
  - Dyspnoea [None]

NARRATIVE: CASE EVENT DATE: 20220704
